FAERS Safety Report 9017448 (Version 2)
Quarter: 2013Q1

REPORT INFORMATION
  Report Type: Report from Study
  Country: US (occurrence: US)
  Receive Date: 20130117
  Receipt Date: 20130131
  Transmission Date: 20140127
  Serious: Yes (Other)
  Sender: FDA-Public Use
  Company Number: US-US-EMD SERONO, INC.-7187210

PATIENT
  Sex: Female

DRUGS (4)
  1. REBIF [Suspect]
     Indication: PRODUCT USED FOR UNKNOWN INDICATION
     Route: 058
     Dates: start: 20090807
  2. LYRICA [Concomitant]
     Indication: PRODUCT USED FOR UNKNOWN INDICATION
  3. TREXIMET [Concomitant]
  4. BACLOFEN [Concomitant]

REACTIONS (5)
  - Raynaud^s phenomenon [Unknown]
  - Fibromyalgia [Unknown]
  - Ear infection [Recovered/Resolved]
  - Liver function test abnormal [Unknown]
  - Rash [Recovering/Resolving]
